FAERS Safety Report 8144555-2 (Version None)
Quarter: 2012Q1

REPORT INFORMATION
  Report Type: 
  Country: None (occurrence: None)
  Receive Date: 20120217
  Receipt Date: 20120203
  Transmission Date: 20120608
  Serious: Yes (Other)
  Sender: FDA-Public Use
  Company Number: PL-ROCHE-1022108

PATIENT
  Sex: Female
  Weight: 70 kg

DRUGS (10)
  1. OMEPRAZOLE [Concomitant]
     Dates: start: 20070715
  2. MIRCERA [Suspect]
     Indication: RENAL FAILURE CHRONIC
     Route: 058
     Dates: start: 20110812
  3. FUROSEMIDE [Concomitant]
     Dates: start: 20060524
  4. CALCIUM CARBONATE [Concomitant]
     Dates: start: 20060524
  5. MIRCERA [Suspect]
     Route: 058
     Dates: start: 20111010
  6. ASPIRIN [Concomitant]
     Dates: start: 20090615
  7. SIMVASTATIN [Concomitant]
     Dates: start: 20090815
  8. MIRCERA [Suspect]
     Route: 058
     Dates: start: 20111107, end: 20111213
  9. VITAMIN B COMPLEX CAP [Concomitant]
     Dates: start: 20090615
  10. DEXAMETHASONE [Concomitant]
     Dates: start: 20111031

REACTIONS (3)
  - RASH [None]
  - HAEMOGLOBIN DECREASED [None]
  - PRURITUS [None]
